FAERS Safety Report 17694374 (Version 1)
Quarter: 2020Q2

REPORT INFORMATION
  Report Type: Report from Study
  Country: CA (occurrence: CA)
  Receive Date: 20200422
  Receipt Date: 20200422
  Transmission Date: 20200714
  Serious: Yes (Other)
  Sender: FDA-Public Use
  Company Number: CA-JNJFOC-20200422696

PATIENT
  Age: 66 Year
  Sex: Female
  Weight: 122.47 kg

DRUGS (1)
  1. STELARA [Suspect]
     Active Substance: USTEKINUMAB
     Indication: PSORIASIS
     Route: 058
     Dates: start: 20150220

REACTIONS (3)
  - Nephrolithiasis [Not Recovered/Not Resolved]
  - Urinary tract infection [Recovering/Resolving]
  - Product dispensing error [Unknown]

NARRATIVE: CASE EVENT DATE: 2020
